FAERS Safety Report 25203391 (Version 4)
Quarter: 2025Q3

REPORT INFORMATION
  Report Type: Spontaneous
  Country: JP (occurrence: JP)
  Receive Date: 20250416
  Receipt Date: 20250829
  Transmission Date: 20251021
  Serious: Yes (Other)
  Sender: AMGEN
  Company Number: JP-AMGEN-JPNSP2025074204

PATIENT
  Age: 80 Year
  Sex: Male

DRUGS (4)
  1. TEPEZZA [Suspect]
     Active Substance: TEPROTUMUMAB-TRBW
     Indication: Endocrine ophthalmopathy
     Dosage: UNK, Q3WK, (FIRST DOSE) (INTRAVENOUS DRIP INFUSION)
     Route: 040
     Dates: start: 20250210
  2. TEPEZZA [Suspect]
     Active Substance: TEPROTUMUMAB-TRBW
     Dosage: UNK, Q3WK, (THIRD DOSE) (INTRAVENOUS DRIP INFUSION)
     Route: 040
     Dates: start: 20250324
  3. TEPEZZA [Suspect]
     Active Substance: TEPROTUMUMAB-TRBW
     Dosage: UNK, Q3WK, (EIGHT DOSE)
     Route: 040
     Dates: start: 2025
  4. CARBIMAZOLE [Concomitant]
     Active Substance: CARBIMAZOLE
     Route: 065

REACTIONS (2)
  - Diabetes mellitus [Not Recovered/Not Resolved]
  - Deafness [Unknown]

NARRATIVE: CASE EVENT DATE: 20250324
